FAERS Safety Report 5934343-7 (Version None)
Quarter: 2008Q4

REPORT INFORMATION
  Report Type: 
  Country: None (occurrence: None)
  Receive Date: 20081029
  Receipt Date: 20081021
  Transmission Date: 20090506
  Serious: Yes (Hospitalization, Other)
  Sender: FDA-Public Use
  Company Number: PHHY2008CA24350

PATIENT
  Sex: Female

DRUGS (4)
  1. ACLASTA [Suspect]
     Indication: OSTEOPOROSIS POSTMENOPAUSAL
     Dosage: 1 DOSE INFUSION
     Route: 042
     Dates: start: 20080930, end: 20080930
  2. CALCIUM [Concomitant]
  3. ALTACE [Concomitant]
     Dosage: 5 G, QD
  4. LOZIDE [Concomitant]
     Dosage: 1.25 G, QD

REACTIONS (10)
  - ARTHRALGIA [None]
  - ASTHENIA [None]
  - CHILLS [None]
  - CREATININE RENAL CLEARANCE DECREASED [None]
  - FALL [None]
  - GAIT DISTURBANCE [None]
  - HEAD INJURY [None]
  - PAIN [None]
  - PAIN IN EXTREMITY [None]
  - SYNCOPE [None]
